FAERS Safety Report 10949985 (Version 1)
Quarter: 2015Q1

REPORT INFORMATION
  Report Type: Spontaneous
  Country: US (occurrence: None)
  Receive Date: 20150226
  Receipt Date: 20150226
  Transmission Date: 20150721
  Serious: Yes (Other)
  Sender: FDA-Public Use
  Company Number: TPA2011A02888

PATIENT
  Age: 7 Month
  Sex: Female
  Weight: 8.16 kg

DRUGS (2)
  1. PREVACID SOLUTAB [Suspect]
     Active Substance: LANSOPRAZOLE
     Route: 048
     Dates: start: 20110207
  2. PREVACID [Suspect]
     Active Substance: LANSOPRAZOLE
     Indication: VOMITING
     Route: 048
     Dates: start: 20101107, end: 20110207

REACTIONS (3)
  - Tremor [None]
  - Muscle spasms [None]
  - Dyskinesia [None]
